FAERS Safety Report 5403973-3 (Version None)
Quarter: 2007Q3

REPORT INFORMATION
  Report Type: 
  Country: None (occurrence: None)
  Receive Date: 20070802
  Receipt Date: 20070727
  Transmission Date: 20080115
  Serious: Yes (Other)
  Sender: FDA-Public Use
  Company Number: B0435968A

PATIENT
  Age: 29 Year
  Sex: Female
  Weight: 58 kg

DRUGS (5)
  1. PAXIL [Suspect]
     Indication: DRUG USE FOR UNKNOWN INDICATION
     Route: 048
     Dates: start: 20060426, end: 20060809
  2. NAUZELIN [Concomitant]
     Dosage: 10MG PER DAY
     Dates: start: 20060426, end: 20060516
  3. LORAZEPAM [Concomitant]
     Dosage: 1.5MG PER DAY
     Route: 048
     Dates: start: 20060426, end: 20060426
  4. RIZE [Concomitant]
     Dosage: 15MG PER DAY
     Route: 048
     Dates: start: 20060426, end: 20060620
  5. CHINESE MEDICINE [Concomitant]
     Dosage: 7.5G PER DAY
     Route: 048
     Dates: start: 20060607, end: 20060809

REACTIONS (4)
  - ANAEMIA [None]
  - DELIVERY [None]
  - HAEMORRHAGE [None]
  - UTERINE HAEMORRHAGE [None]
